FAERS Safety Report 21519647 (Version 1)
Quarter: 2022Q4

REPORT INFORMATION
  Report Type: Report from Study
  Country: US (occurrence: US)
  Receive Date: 20221028
  Receipt Date: 20221028
  Transmission Date: 20230113
  Serious: Yes (Hospitalization, Other)
  Sender: FDA-Public Use
  Company Number: US-PFIZER INC-PV202200029113

PATIENT
  Age: 54 Year
  Sex: Female

DRUGS (7)
  1. SILDENAFIL [Suspect]
     Active Substance: SILDENAFIL
     Indication: Pulmonary hypertension
     Dosage: 40 MILLIGRAM, TID
     Route: 065
     Dates: start: 202006
  2. SILDENAFIL [Suspect]
     Active Substance: SILDENAFIL
     Dosage: 40 MILLIGRAM, TID
     Route: 065
     Dates: start: 20200818
  3. SILDENAFIL [Suspect]
     Active Substance: SILDENAFIL
     Dosage: 40 MILLIGRAM, TID
     Route: 065
     Dates: start: 20210114
  4. AMBRISENTAN [Suspect]
     Active Substance: AMBRISENTAN
     Indication: Pulmonary arterial hypertension
     Dosage: 5 MILLIGRAM, QD (5 MG, 1X/DAY)
     Route: 065
     Dates: start: 20130903
  5. AMBRISENTAN [Suspect]
     Active Substance: AMBRISENTAN
     Dosage: 5 MILLIGRAM, QD (5 MG, 1X/DAY)
     Route: 065
     Dates: start: 20210111
  6. AMBRISENTAN [Suspect]
     Active Substance: AMBRISENTAN
     Dosage: 5 MILLIGRAM, QD (5 MG, 1X/DAY)
     Route: 048
     Dates: start: 20210114
  7. ORENITRAM [Suspect]
     Active Substance: TREPROSTINIL
     Indication: Pulmonary hypertension
     Dosage: 0.125 MILLIGRAM, TID (0.125 MG, 3X/DAY)
     Route: 065
     Dates: start: 20220706, end: 202207

REACTIONS (9)
  - Device malfunction [Unknown]
  - Pulmonary arterial hypertension [Not Recovered/Not Resolved]
  - Condition aggravated [Not Recovered/Not Resolved]
  - COVID-19 [Not Recovered/Not Resolved]
  - Pain [Unknown]
  - Cough [Not Recovered/Not Resolved]
  - Pyrexia [Not Recovered/Not Resolved]
  - Off label use [Unknown]
  - Product dose omission issue [Unknown]

NARRATIVE: CASE EVENT DATE: 20220601
